FAERS Safety Report 19674309 (Version 3)
Quarter: 2022Q1

REPORT INFORMATION
  Report Type: Report from Study
  Country: IT (occurrence: IT)
  Receive Date: 20210809
  Receipt Date: 20220119
  Transmission Date: 20220423
  Serious: Yes (Other)
  Sender: FDA-Public Use
  Company Number: IT-CELLTRION INC.-2021IT010345

PATIENT

DRUGS (29)
  1. TRASTUZUMAB [Suspect]
     Active Substance: TRASTUZUMAB
     Indication: HER2 positive breast cancer
     Dosage: 816 MILLIGRAM EVERY 3 WEEKS, ON 27/SEP/2017, RECEIVED MOST RECENT DOSE PRIOR TO THE EVENT.
     Route: 042
     Dates: start: 20170424
  2. TRASTUZUMAB [Suspect]
     Active Substance: TRASTUZUMAB
     Dosage: 840 MILLIGRAM EVERY 3 WEEKS, ON 09/JUN/2020 RECEIVED MOST RECENT DOSE PRIOR TO THE EVENT
     Route: 042
     Dates: start: 20190307
  3. TRASTUZUMAB [Suspect]
     Active Substance: TRASTUZUMAB
     Dosage: 30 MILLIGRAM EVERY 3 WEEKS
     Route: 042
     Dates: start: 20190404, end: 20200422
  4. TRASTUZUMAB [Suspect]
     Active Substance: TRASTUZUMAB
     Dosage: 480 MILLIGRAM EVERY 3 WEEKS
     Route: 042
     Dates: start: 20200609, end: 20201118
  5. PERTUZUMAB [Suspect]
     Active Substance: PERTUZUMAB
     Indication: HER2 positive breast cancer
     Dosage: 840 MILLIGRAM, ON 24/MAY/2017, RECEIVED MOST RECENT DOSE PRIOR TO THE EVENT.
     Route: 042
     Dates: start: 20170424
  6. METHOTREXATE [Suspect]
     Active Substance: METHOTREXATE
     Indication: HER2 positive breast cancer
     Dosage: 5 MILLIGRAM, ON 11/DEC/2019 RECEIVED MOST RECENT DOSE PRIOR TO THE EVENT.
     Route: 048
     Dates: start: 20191030, end: 20191127
  7. ADO-TRASTUZUMAB EMTANSINE [Suspect]
     Active Substance: ADO-TRASTUZUMAB EMTANSINE
     Indication: HER2 positive breast cancer
     Dosage: 75 MILLIGRAM EVERY 3 WEEKS, ON 26/SEP/2018 RECEIVED MOST RECENT DOSE PRIOR TO THE EVENT
     Route: 058
     Dates: start: 20180905
  8. VINORELBINE [Suspect]
     Active Substance: VINORELBINE TARTRATE
     Indication: HER2 positive breast cancer
     Dosage: 50 MILLIGRAM,ON 02/MAY/2019 RECEIVED MOST RECENT DOSE PRIOR TO THE EVENT.
     Route: 042
     Dates: start: 20190307, end: 20190404
  9. NETUPITANT\PALONOSETRON HYDROCHLORIDE [Suspect]
     Active Substance: NETUPITANT\PALONOSETRON HYDROCHLORIDE
     Indication: HER2 positive breast cancer
     Dosage: 300.5 MILLIGRAM EVERY 3 WEEKS
     Route: 042
     Dates: start: 20181128, end: 20190130
  10. LAPATINIB [Suspect]
     Active Substance: LAPATINIB
     Indication: HER2 positive breast cancer
     Dosage: 1250 MILLIGRAM, QD
     Route: 048
     Dates: start: 20180511, end: 20180904
  11. DOCETAXEL [Suspect]
     Active Substance: DOCETAXEL
     Indication: HER2 positive breast cancer
     Dosage: 150 MILLIGRAM EVERY 3 WEEKS
     Route: 042
     Dates: start: 20170424, end: 20170816
  12. EPIRUBICIN [Suspect]
     Active Substance: EPIRUBICIN
     Indication: HER2 positive breast cancer
     Dosage: 130 MILLIGRAM EVERY 3 WEEKS
     Route: 042
     Dates: start: 20181128, end: 20190130
  13. CARBOPLATIN [Suspect]
     Active Substance: CARBOPLATIN
     Indication: HER2 positive breast cancer
     Dosage: 600 MILLIGRAM EVERY 3 WEEKS, ON 28/JUL/2020 RECEIVED MOST RECENT DOSE PRIOR TO THE EVENT.
     Route: 042
     Dates: start: 20200422, end: 20200422
  14. CYCLOPHOSPHAMIDE [Suspect]
     Active Substance: CYCLOPHOSPHAMIDE
     Indication: HER2 positive breast cancer
     Dosage: 130 MILLIGRAM EVERY 3 WEEKS, 30/JAN/2019, SHE RECEIVED MOST RECENT DOSE OF CYCLOPHOSPHAMIDE
     Route: 042
     Dates: start: 20181128
  15. CYCLOPHOSPHAMIDE [Suspect]
     Active Substance: CYCLOPHOSPHAMIDE
     Dosage: 50 MILLIGRAM EVERY 0.5 DAYS
     Route: 042
     Dates: start: 20191030
  16. CAPECITABINE [Suspect]
     Active Substance: CAPECITABINE
     Indication: HER2 positive breast cancer
     Dosage: 4000 MILLIGRAM, QD
     Route: 048
     Dates: start: 20180521, end: 20180904
  17. ERIBULIN MESYLATE [Suspect]
     Active Substance: ERIBULIN MESYLATE
     Indication: HER2 positive breast cancer
     Dosage: 2 MILLIGRAM
     Route: 042
     Dates: start: 20201127
  18. RANITIDINE [Concomitant]
     Active Substance: RANITIDINE
  19. PREDNISONE [Concomitant]
     Active Substance: PREDNISONE
  20. CHLORPHENIRAMINE MALEATE [Concomitant]
     Active Substance: CHLORPHENIRAMINE MALEATE
  21. PALONOSETRON [Concomitant]
     Active Substance: PALONOSETRON
  22. PREDNISONE [Concomitant]
     Active Substance: PREDNISONE
     Dosage: ONGOING = CHECKED
     Dates: start: 20200722
  23. GRANISETRON [Concomitant]
     Active Substance: GRANISETRON
  24. DEXAMETHASONE PHOSPHATE [Concomitant]
     Active Substance: DEXAMETHASONE PHOSPHATE
  25. RAMIPRIL [Concomitant]
     Active Substance: RAMIPRIL
     Dosage: ONGOING = CHECKED
     Dates: start: 20190909
  26. LORATADINE [Concomitant]
     Active Substance: LORATADINE
     Dosage: ONGOING = CHECKED
     Dates: start: 20190816
  27. METOCLOPRAMIDE [Concomitant]
     Active Substance: METOCLOPRAMIDE
     Dosage: ONGOING = CHECKED
     Dates: start: 20200401
  28. VENLAFAXINE HYDROCHLORIDE [Concomitant]
     Active Substance: VENLAFAXINE HYDROCHLORIDE
     Dosage: ONGOING = CHECKED
  29. ESOMEPRAZOLE [Concomitant]
     Active Substance: ESOMEPRAZOLE
     Dosage: ONGOING = CHECKED
     Dates: start: 20200129

REACTIONS (5)
  - Neutropenia [Recovering/Resolving]
  - Neutropenia [Recovered/Resolved]
  - White blood cell count decreased [Recovered/Resolved]
  - Overdose [Unknown]
  - Underdose [Unknown]

NARRATIVE: CASE EVENT DATE: 20190327
